FAERS Safety Report 4933194-X (Version None)
Quarter: 2006Q1

REPORT INFORMATION
  Report Type: 
  Country: None (occurrence: None)
  Receive Date: 20060306
  Receipt Date: 20030930
  Transmission Date: 20060701
  Serious: Yes (Death, Hospitalization)
  Sender: FDA-Public Use
  Company Number: US-MERCK-0309USA03341

PATIENT
  Age: 32 Year
  Sex: Female
  Weight: 91 kg

DRUGS (7)
  1. VIOXX [Suspect]
     Indication: PAIN IN EXTREMITY
     Route: 048
     Dates: start: 20000831, end: 20000903
  2. VIOXX [Suspect]
     Route: 048
     Dates: start: 20000904, end: 20000911
  3. VIOXX [Suspect]
     Indication: PLANTAR FASCIITIS
     Route: 048
     Dates: start: 20000831, end: 20000903
  4. VIOXX [Suspect]
     Route: 048
     Dates: start: 20000904, end: 20000911
  5. ORTHO CYCLEN-28 [Concomitant]
     Route: 065
  6. IRON (UNSPECIFIED) [Concomitant]
     Route: 065
  7. DARVOCET-N 50 [Concomitant]
     Indication: PAIN
     Route: 065

REACTIONS (5)
  - CARDIAC ARREST [None]
  - CONVULSION [None]
  - DEEP VEIN THROMBOSIS [None]
  - INJURY [None]
  - PULMONARY EMBOLISM [None]
